FAERS Safety Report 19846269 (Version 1)
Quarter: 2021Q3

REPORT INFORMATION
  Report Type: Spontaneous
  Country: US (occurrence: US)
  Receive Date: 20210917
  Receipt Date: 20210917
  Transmission Date: 20211014
  Serious: Yes (Hospitalization)
  Sender: FDA-Public Use
  Company Number: US-AVET LIFESCIENCES LTD-2021-AVET-000016

PATIENT
  Age: 79 Year
  Sex: Female

DRUGS (4)
  1. SULFAMETHOXAZOLE, TRIMETHOPRIM [Suspect]
     Active Substance: SULFAMETHOXAZOLE\TRIMETHOPRIM
     Indication: URINARY TRACT INFECTION
     Dosage: 14?DAY COURSE OF TMP/SMX
  2. SULFAMETHOXAZOLE, TRIMETHOPRIM [Suspect]
     Active Substance: SULFAMETHOXAZOLE\TRIMETHOPRIM
     Dosage: 21?DAY COURSE OF PROPHYLACTIC TMP/SMX.
  3. SULFAMETHOXAZOLE, TRIMETHOPRIM [Suspect]
     Active Substance: SULFAMETHOXAZOLE\TRIMETHOPRIM
     Dosage: ADMINISTERING 14 DAYS OF CULTURE?DIRECTED TMP/SMX
  4. SULFAMETHOXAZOLE, TRIMETHOPRIM [Suspect]
     Active Substance: SULFAMETHOXAZOLE\TRIMETHOPRIM
     Indication: INFECTION PROPHYLAXIS
     Dosage: MULTIPLE ADDITIONAL COURSES OF TMP/SMX

REACTIONS (2)
  - Calculus urinary [Recovered/Resolved]
  - Urosepsis [Recovered/Resolved]
